FAERS Safety Report 7065328-8 (Version None)
Quarter: 2010Q4

REPORT INFORMATION
  Report Type: 
  Country: None (occurrence: None)
  Receive Date: 20101027
  Receipt Date: 20101014
  Transmission Date: 20110411
  Serious: Yes (Hospitalization, Other)
  Sender: FDA-Public Use
  Company Number: DE-ROCHE-725229

PATIENT
  Sex: Male
  Weight: 106 kg

DRUGS (8)
  1. CAPECITABINE [Suspect]
     Indication: COLORECTAL CANCER STAGE IV
     Dosage: DOSE: 2000 MG TWICE DAILY FROM DAY1- DAY 14.
     Route: 048
     Dates: start: 20090306, end: 20100827
  2. CAPECITABINE [Suspect]
     Dosage: DOSE: 2000 MG TWICE DAILY FROM DAY1- DAY 14; LAST DOSE PRIOR TO SAE: 24 SEP 2010
     Route: 048
     Dates: end: 20101001
  3. BEVACIZUMAB [Suspect]
     Indication: COLORECTAL CANCER STAGE IV
     Dosage: LAST DOSE PRIOR TO SAE ON 20 AUGUST 2010 AND THERAPY INTRRUPTED ON 27 AUGUST 2010.
     Route: 042
     Dates: start: 20090306, end: 20100820
  4. BEVACIZUMAB [Suspect]
     Dosage: UNITS REPORTED: 75 MG/M2; LAST DOSE PRIOR TO SAE: 01 OCT 2010
     Route: 042
  5. OXALIPLATIN [Suspect]
     Indication: COLORECTAL CANCER STAGE IV
     Dosage: DATE OF LAST DOSE PRIOR TO SAE: 20 AUGUST 2010 AND THERAPY INTRRUPTED ON 27 AUGUST 2010.
     Route: 042
     Dates: start: 20090306, end: 20100820
  6. OXALIPLATIN [Suspect]
     Dosage: UNITS: 100 MG/M2; LAST DOSE PRIOR TO SAE: 10 SEP 2010
     Route: 042
     Dates: end: 20100911
  7. IMATINIB [Suspect]
     Indication: COLORECTAL CANCER STAGE IV
     Dosage: DOSE: 300 MG DAILY FROM DAY-1 TO DAY 21.
     Route: 048
     Dates: start: 20090306, end: 20100827
  8. IMATINIB [Suspect]
     Dosage: DOSE: 300 MG DAILY FROM DAY 1 TO DAY 21; LAST DOSE PRIOR TO SAE: 15 SEP 2010
     Route: 048
     Dates: end: 20100915

REACTIONS (2)
  - PANCREATIC CARCINOMA [None]
  - PANCREATITIS [None]
